FAERS Safety Report 9781204 (Version 2)
Quarter: 2014Q2

REPORT INFORMATION
  Report Type: Spontaneous
  Country: FR (occurrence: FR)
  Receive Date: 20131224
  Receipt Date: 20140619
  Transmission Date: 20141212
  Serious: Yes (Other)
  Sender: FDA-Public Use
  Company Number: FR-ABBVIE-13P-056-1179374-00

PATIENT
  Age: 32 Year
  Sex: Female

DRUGS (2)
  1. KALETRA [Suspect]
     Indication: EXPOSURE VIA BLOOD
     Route: 048
     Dates: start: 20130729, end: 20130828
  2. TRUVADA [Suspect]
     Indication: EXPOSURE VIA BLOOD
     Route: 048
     Dates: start: 20130729, end: 20130828

REACTIONS (3)
  - Thrombocytopenia [Recovered/Resolved]
  - Haematemesis [Recovered/Resolved]
  - Gastrointestinal haemorrhage [Recovered/Resolved]
